FAERS Safety Report 11760980 (Version 1)
Quarter: 2015Q4

REPORT INFORMATION
  Report Type: Spontaneous
  Country: FR (occurrence: FR)
  Receive Date: 20151120
  Receipt Date: 20151120
  Transmission Date: 20160304
  Serious: Yes (Hospitalization)
  Sender: FDA-Public Use
  Company Number: FR-SA-2015SA180120

PATIENT
  Age: 87 Year
  Sex: Male

DRUGS (15)
  1. EZETROL [Suspect]
     Active Substance: EZETIMIBE
     Route: 065
     Dates: start: 20150828, end: 201509
  2. ESCITALOPRAM [Suspect]
     Active Substance: ESCITALOPRAM OXALATE
     Route: 065
     Dates: start: 20150820, end: 201509
  3. ALDACTONE [Concomitant]
     Active Substance: SPIRONOLACTONE
     Route: 065
     Dates: start: 20150828, end: 20150831
  4. VITAMIN B1 AND B6 [Concomitant]
     Active Substance: PYRIDOXINE HYDROCHLORIDE\THIAMINE HYDROCHLORIDE
     Route: 065
     Dates: start: 20150828, end: 201509
  5. KARDEGIC [Suspect]
     Active Substance: ASPIRIN LYSINE
     Route: 065
     Dates: start: 20150828
  6. PANTOPRAZOLE [Suspect]
     Active Substance: PANTOPRAZOLE SODIUM
     Route: 065
     Dates: start: 20150828, end: 201509
  7. FERO GRAD VITAMINE C [Suspect]
     Active Substance: ASCORBIC ACID\FERROUS SULFATE
     Route: 065
     Dates: start: 20150828, end: 201509
  8. BROMAZEPAM [Suspect]
     Active Substance: BROMAZEPAM
     Route: 065
     Dates: start: 20150828, end: 20150830
  9. LASILIX [Suspect]
     Active Substance: FUROSEMIDE
     Route: 048
     Dates: start: 20150828
  10. PRAVASTATIN [Suspect]
     Active Substance: PRAVASTATIN\PRAVASTATIN SODIUM
     Route: 065
     Dates: start: 20150828, end: 201509
  11. ZOLPIDEM [Suspect]
     Active Substance: ZOLPIDEM\ZOLPIDEM TARTRATE
     Route: 048
     Dates: start: 20150828, end: 20150830
  12. LASILIX [Suspect]
     Active Substance: FUROSEMIDE
     Route: 048
  13. CEFEPIME [Suspect]
     Active Substance: CEFEPIME HYDROCHLORIDE
     Indication: ENTEROBACTER INFECTION
     Route: 042
     Dates: start: 20150828, end: 20150831
  14. CALCIPARINE [Suspect]
     Active Substance: HEPARIN CALCIUM
     Route: 058
     Dates: start: 20150828, end: 201509
  15. IKOREL [Concomitant]
     Active Substance: NICORANDIL
     Dosage: 0,5 DF MORNING, 0,75 DF EVENING
     Route: 065
     Dates: start: 20150828, end: 201509

REACTIONS (3)
  - Encephalopathy [Recovered/Resolved]
  - Incoherent [Recovered/Resolved]
  - Confusional state [Recovered/Resolved]

NARRATIVE: CASE EVENT DATE: 20150830
